FAERS Safety Report 12179742 (Version 6)
Quarter: 2017Q1

REPORT INFORMATION
  Report Type: Report from Study
  Country: BR (occurrence: BR)
  Receive Date: 20160314
  Receipt Date: 20170329
  Transmission Date: 20170428
  Serious: Yes (Life-Threatening, Hospitalization)
  Sender: FDA-Public Use
  Company Number: PHHY2016BR012394

PATIENT
  Sex: Female
  Weight: 60 kg

DRUGS (1)
  1. EXJADE [Suspect]
     Active Substance: DEFERASIROX
     Indication: HAEMOCHROMATOSIS
     Dosage: 2 DF, QD (2 TABLETS OF 500 MG DAILY)
     Route: 048
     Dates: start: 20130510

REACTIONS (17)
  - Platelet count decreased [Unknown]
  - Serum ferritin increased [Unknown]
  - Skin discolouration [Unknown]
  - Haemochromatosis [Unknown]
  - Arthropathy [Unknown]
  - Pigmentation disorder [Unknown]
  - Decreased immune responsiveness [Unknown]
  - Platelet count decreased [Recovered/Resolved]
  - Fat tissue increased [Unknown]
  - Decreased immune responsiveness [Recovered/Resolved]
  - Dizziness [Recovered/Resolved]
  - Malaise [Recovering/Resolving]
  - Bone decalcification [Unknown]
  - Depressed mood [Unknown]
  - Arthritis infective [Unknown]
  - Abdominal pain upper [Unknown]
  - Hypoacusis [Unknown]
